FAERS Safety Report 5315869-6 (Version None)
Quarter: 2007Q2

REPORT INFORMATION
  Report Type: 
  Country: None (occurrence: None)
  Receive Date: 20070503
  Receipt Date: 20070420
  Transmission Date: 20071010
  Serious: Yes (Other)
  Sender: FDA-Public Use
  Company Number: ESWYE518423APR07

PATIENT
  Age: 71 Year
  Sex: Female

DRUGS (2)
  1. DOBUPAL RETARD [Suspect]
     Indication: DEPRESSION
     Route: 048
  2. DEPAMIDE [Concomitant]
     Route: 046

REACTIONS (6)
  - EYE SWELLING [None]
  - LIP SWELLING [None]
  - OEDEMA MOUTH [None]
  - OEDEMA PERIPHERAL [None]
  - PHOTOSENSITIVITY REACTION [None]
  - SOCIAL AVOIDANT BEHAVIOUR [None]
